FAERS Safety Report 4725311-1 (Version None)
Quarter: 2005Q3

REPORT INFORMATION
  Report Type: 
  Country: None (occurrence: None)
  Receive Date: 20050725
  Receipt Date: 20050711
  Transmission Date: 20060218
  Serious: Yes (Hospitalization, Other)
  Sender: FDA-Public Use
  Company Number: 2005043292

PATIENT
  Age: 82 Year
  Sex: Female
  Weight: 49.8957 kg

DRUGS (7)
  1. XALATAN [Suspect]
     Indication: GLAUCOMA
     Dosage: ( , IN 1 D), OPHTHALMIC
  2. ALPHAGAN [Concomitant]
  3. LIPITOR [Concomitant]
  4. FOLIC ACID [Concomitant]
  5. PREVACID (LANSOPRAZOLE0 [Concomitant]
  6. LORAZEPAM [Concomitant]
  7. IRON (IRON) [Concomitant]

REACTIONS (12)
  - ABNORMAL SENSATION IN EYE [None]
  - ANAEMIA [None]
  - ANGIOPATHY [None]
  - BACTERAEMIA [None]
  - BLEPHAROSPASM [None]
  - EYE IRRITATION [None]
  - EYE PAIN [None]
  - EYELASH THICKENING [None]
  - GROWTH OF EYELASHES [None]
  - MULTIPLE ALLERGIES [None]
  - NASOPHARYNGITIS [None]
  - NERVOUSNESS [None]
